FAERS Safety Report 8960444 (Version 1)
Quarter: 2012Q4

REPORT INFORMATION
  Report Type: Spontaneous
  Country: US (occurrence: None)
  Receive Date: 20121211
  Receipt Date: 20121211
  Transmission Date: 20130627
  Serious: Yes (Life-Threatening, Hospitalization)
  Sender: FDA-Public Use
  Company Number: None

PATIENT

DRUGS (2)
  1. GLIMEPIRIDE [Suspect]
     Indication: BLOOD SUGAR INCREASED
     Route: 048
     Dates: start: 20121130, end: 20121130
  2. GLIMEPIRIDE [Suspect]
     Indication: BLOOD SUGAR INCREASED
     Dates: start: 20121204, end: 20121204

REACTIONS (6)
  - Hypoglycaemic coma [None]
  - Cold sweat [None]
  - Confusional state [None]
  - Vision blurred [None]
  - Nausea [None]
  - Fatigue [None]
